FAERS Safety Report 7292408-4 (Version None)
Quarter: 2011Q1

REPORT INFORMATION
  Report Type: 
  Country: None (occurrence: None)
  Receive Date: 20110215
  Receipt Date: 20110210
  Transmission Date: 20110831
  Serious: No
  Sender: FDA-Public Use
  Company Number: US-PFIZER INC-2011030702

PATIENT
  Sex: Female
  Weight: 54.42 kg

DRUGS (5)
  1. EFFEXOR XR [Suspect]
     Indication: DEPRESSION
     Dosage: 75 MG, 3X/DAY
     Route: 048
  2. CLONAZEPAM [Concomitant]
     Indication: ANXIETY
     Dosage: 1 MG, AS NEEDED
  3. LEXAPRO [Concomitant]
     Indication: DEPRESSION
     Dosage: 200 MG, 1X/DAY
  4. LAMOTRIGINE [Concomitant]
     Indication: DEPRESSION
     Dosage: 100 MG, 2X/DAY
  5. SEROQUEL [Concomitant]
     Indication: DEPRESSION
     Dosage: 200 MG, 1X/DAY

REACTIONS (1)
  - DEPRESSION [None]
